FAERS Safety Report 17839563 (Version 1)
Quarter: 2020Q2

REPORT INFORMATION
  Report Type: Spontaneous
  Country: FR (occurrence: FR)
  Receive Date: 20200529
  Receipt Date: 20200529
  Transmission Date: 20200714
  Serious: Yes (Hospitalization)
  Sender: FDA-Public Use
  Company Number: FR-TEVA-2020-FR-1239618

PATIENT
  Age: 53 Year
  Sex: Male

DRUGS (1)
  1. ATORVASTATINE [Suspect]
     Active Substance: ATORVASTATIN
     Indication: THROMBOSIS PROPHYLAXIS
     Route: 048
     Dates: end: 20200414

REACTIONS (2)
  - Hepatocellular injury [Recovered/Resolved with Sequelae]
  - Rhabdomyolysis [Recovered/Resolved]

NARRATIVE: CASE EVENT DATE: 20200410
